FAERS Safety Report 11357780 (Version 1)
Quarter: 2015Q3

REPORT INFORMATION
  Report Type: Spontaneous
  Country: US (occurrence: US)
  Receive Date: 20150803
  Receipt Date: 20150803
  Transmission Date: 20151125
  Serious: No
  Sender: FDA-Public Use
  Company Number: US-ELI_LILLY_AND_COMPANY-US201012001357

PATIENT
  Sex: Male

DRUGS (4)
  1. PRILOSEC [Concomitant]
     Active Substance: OMEPRAZOLE MAGNESIUM
  2. ZYPREXA [Suspect]
     Active Substance: OLANZAPINE
     Indication: BIPOLAR DISORDER
     Dosage: 2.5 MG, DAILY (1/D)
     Dates: start: 2010, end: 2010
  3. ZYPREXA [Suspect]
     Active Substance: OLANZAPINE
     Dosage: 5 MG, DAILY (1/D)
     Dates: start: 2010, end: 2010
  4. ZYPREXA [Suspect]
     Active Substance: OLANZAPINE
     Dosage: 2.5 MG, DAILY (1/D)
     Dates: start: 2010, end: 2010

REACTIONS (5)
  - Gastrooesophageal reflux disease [Not Recovered/Not Resolved]
  - Gallbladder operation [Unknown]
  - Jaw disorder [Unknown]
  - Abdominal pain upper [Unknown]
  - Gait disturbance [Unknown]

NARRATIVE: CASE EVENT DATE: 2010
